FAERS Safety Report 8013056-4 (Version None)
Quarter: 2011Q4

REPORT INFORMATION
  Report Type: 
  Country: None (occurrence: None)
  Receive Date: 20111229
  Receipt Date: 20111227
  Transmission Date: 20120403
  Serious: Yes (Other)
  Sender: FDA-Public Use
  Company Number: US-PFIZER INC-2011143960

PATIENT
  Sex: Male

DRUGS (1)
  1. SUTENT [Suspect]
     Dosage: 50 MG DAILY FOR 28 DAYS Q42 DAYS
     Dates: start: 20110606

REACTIONS (9)
  - FLATULENCE [None]
  - WHITE BLOOD CELL COUNT INCREASED [None]
  - BONE PAIN [None]
  - EPISTAXIS [None]
  - FATIGUE [None]
  - DYSPNOEA [None]
  - COUGH [None]
  - DIARRHOEA [None]
  - INSOMNIA [None]
